FAERS Safety Report 9891739 (Version 1)
Quarter: 2014Q1

REPORT INFORMATION
  Report Type: Spontaneous
  Country: DE (occurrence: DE)
  Receive Date: 20140212
  Receipt Date: 20140212
  Transmission Date: 20141002
  Serious: Yes (Death)
  Sender: FDA-Public Use
  Company Number: PHHY2014DE015932

PATIENT
  Age: 62 Year
  Sex: Female

DRUGS (6)
  1. CICLOSPORIN [Suspect]
     Indication: LIVER TRANSPLANT
  2. CICLOSPORIN [Suspect]
     Indication: IMMUNOSUPPRESSANT DRUG THERAPY
  3. STEROIDS [Suspect]
     Indication: IMMUNOSUPPRESSANT DRUG THERAPY
  4. RIBAVIRIN [Concomitant]
  5. PEGINTERFERON [Concomitant]
  6. TELAPREVIR [Concomitant]

REACTIONS (2)
  - Complications of transplanted liver [Fatal]
  - Transplant failure [Fatal]
